FAERS Safety Report 7701317-5 (Version None)
Quarter: 2011Q3

REPORT INFORMATION
  Report Type: 
  Country: None (occurrence: None)
  Receive Date: 20110822
  Receipt Date: 20110816
  Transmission Date: 20111222
  Serious: Yes (Other)
  Sender: FDA-Public Use
  Company Number: US-JNJFOC-20110808494

PATIENT
  Sex: Female
  Weight: 63.5 kg

DRUGS (1)
  1. NUCYNTA [Suspect]
     Indication: MUSCULOSKELETAL PAIN
     Dosage: 50 MG 2 TABLETS EVERY 4 TO 6 HOURS
     Route: 048
     Dates: start: 20110808, end: 20110808

REACTIONS (5)
  - PETECHIAE [None]
  - PRURITUS GENERALISED [None]
  - CONTUSION [None]
  - BLOOD PRESSURE INCREASED [None]
  - URTICARIA [None]
